FAERS Safety Report 5648943-5 (Version None)
Quarter: 2008Q1

REPORT INFORMATION
  Report Type: 
  Country: None (occurrence: None)
  Receive Date: 20080304
  Receipt Date: 20080131
  Transmission Date: 20080703
  Serious: No
  Sender: FDA-Public Use
  Company Number: US-BAYER-US-2007-039215

PATIENT
  Age: 37 Year
  Sex: Female

DRUGS (6)
  1. MAGNEVIST [Suspect]
     Indication: NUCLEAR MAGNETIC RESONANCE IMAGING
     Dosage: UNIT DOSE: 20 ML
     Route: 042
     Dates: start: 20071004, end: 20071004
  2. PREVACID [Concomitant]
  3. AMOXICILLIN [Concomitant]
  4. BIAXIN [Concomitant]
  5. YASMIN [Concomitant]
  6. TYLENOL (CAPLET) [Concomitant]

REACTIONS (3)
  - RHINORRHOEA [None]
  - SNEEZING [None]
  - URTICARIA [None]
